FAERS Safety Report 4578412-5 (Version None)
Quarter: 2005Q1

REPORT INFORMATION
  Report Type: 
  Country: None (occurrence: None)
  Receive Date: 20050209
  Receipt Date: 20050202
  Transmission Date: 20050727
  Serious: Yes (Other)
  Sender: FDA-Public Use
  Company Number: 2004-00940

PATIENT
  Age: 18 Year
  Sex: Male

DRUGS (2)
  1. VELCADE [Suspect]
     Indication: ACUTE MYELOID LEUKAEMIA
     Dosage: 0.80 MG/M2
     Dates: start: 20041012, end: 20040101
  2. IDARUBICIN HCL [Concomitant]

REACTIONS (2)
  - BLAST CELLS PRESENT [None]
  - FACIAL PALSY [None]
